FAERS Safety Report 7394361-1 (Version None)
Quarter: 2011Q2

REPORT INFORMATION
  Report Type: 
  Country: None (occurrence: None)
  Receive Date: 20110405
  Receipt Date: 20110330
  Transmission Date: 20111010
  Serious: Yes (Hospitalization)
  Sender: FDA-Public Use
  Company Number: US-ROCHE-763613

PATIENT
  Sex: Female
  Weight: 70.3 kg

DRUGS (5)
  1. MAALOX [Concomitant]
  2. ACTEMRA [Suspect]
     Route: 042
     Dates: start: 20110215
  3. EFFIENT [Concomitant]
     Indication: PLATELET DISORDER
  4. ACTEMRA [Suspect]
     Indication: RHEUMATOID ARTHRITIS
     Dosage: FORM: INFUSION
     Route: 042
     Dates: start: 20110105
  5. ORENCIA [Concomitant]
     Dosage: SECOND DOSE ON 4 DEC 2010
     Dates: start: 20101109

REACTIONS (2)
  - BLOOD CREATININE INCREASED [None]
  - TUBULOINTERSTITIAL NEPHRITIS [None]
